FAERS Safety Report 15483368 (Version 2)
Quarter: 2019Q4

REPORT INFORMATION
  Report Type: Spontaneous
  Country: US (occurrence: US)
  Receive Date: 20181010
  Receipt Date: 20191107
  Transmission Date: 20200122
  Serious: No
  Sender: FDA-Public Use
  Company Number: US-TARO-2018TAR00694

PATIENT
  Sex: Male

DRUGS (1)
  1. MUPIROCIN OINTMENT USP 2% [Suspect]
     Active Substance: MUPIROCIN
     Indication: IMPETIGO
     Dosage: UNK
     Route: 061
     Dates: start: 201809

REACTIONS (4)
  - Dry skin [Not Recovered/Not Resolved]
  - Drug ineffective [Not Recovered/Not Resolved]
  - Product quality issue [Not Recovered/Not Resolved]
  - Incorrect route of product administration [Not Recovered/Not Resolved]

NARRATIVE: CASE EVENT DATE: 201809
